FAERS Safety Report 19783233 (Version 6)
Quarter: 2022Q2

REPORT INFORMATION
  Report Type: Spontaneous
  Country: IT (occurrence: IT)
  Receive Date: 20210902
  Receipt Date: 20220608
  Transmission Date: 20220720
  Serious: Yes (Death, Life-Threatening, Other)
  Sender: FDA-Public Use
  Company Number: IT-GILEAD-2021-0545653

PATIENT
  Age: 61 Year
  Sex: Female

DRUGS (3)
  1. YESCARTA [Suspect]
     Active Substance: AXICABTAGENE CILOLEUCEL
     Indication: Diffuse large B-cell lymphoma
     Dosage: 1 BAG OF 200 MILLIONS OF VIABLE T CAR-POSITIVE, ONCE
     Route: 042
     Dates: start: 20210811, end: 20210811
  2. LAMIVUDINE [Concomitant]
     Active Substance: LAMIVUDINE
     Indication: Hepatitis B
     Dosage: 100 MG, QD
     Dates: start: 202101
  3. VALACYCLOVIR [Concomitant]
     Active Substance: VALACYCLOVIR HYDROCHLORIDE
     Indication: Prophylaxis
     Dosage: 1000 MG, QD
     Dates: start: 202101

REACTIONS (6)
  - Altered state of consciousness [Recovered/Resolved]
  - Blood creatinine increased [Recovered/Resolved]
  - Cytokine release syndrome [Recovered/Resolved]
  - Immune effector cell-associated neurotoxicity syndrome [Recovered/Resolved]
  - Non-Hodgkin^s lymphoma recurrent [Fatal]
  - Infection [Unknown]

NARRATIVE: CASE EVENT DATE: 20210812
